FAERS Safety Report 5330233-1 (Version None)
Quarter: 2007Q2

REPORT INFORMATION
  Report Type: 
  Country: None (occurrence: None)
  Receive Date: 20070521
  Receipt Date: 20070509
  Transmission Date: 20071010
  Serious: Yes (Other)
  Sender: FDA-Public Use
  Company Number: PL-AMGEN-UK224206

PATIENT
  Age: 33 Year
  Sex: Female

DRUGS (3)
  1. ARANESP [Suspect]
     Indication: RENAL FAILURE CHRONIC
     Route: 058
  2. METHYLDOPA [Concomitant]
     Route: 048
  3. IRON [Concomitant]
     Route: 048

REACTIONS (4)
  - HYPERTENSION [None]
  - HYPERVOLAEMIA [None]
  - METABOLIC ACIDOSIS [None]
  - THERAPEUTIC RESPONSE DECREASED [None]
